FAERS Safety Report 4396935-9 (Version None)
Quarter: 2004Q3

REPORT INFORMATION
  Report Type: 
  Country: None (occurrence: None)
  Receive Date: 20040712
  Receipt Date: 20040622
  Transmission Date: 20050211
  Serious: Yes (Other)
  Sender: FDA-Public Use
  Company Number: TR-JNJFOC-20040605708

PATIENT
  Age: 18 Year
  Sex: Female
  Weight: 42 kg

DRUGS (5)
  1. REMICADE [Suspect]
     Indication: JUVENILE ARTHRITIS
     Dosage: INTRAVENOUS
     Route: 042
  2. DELTACORTRIL [Concomitant]
  3. FOLBIOL (FOLIC ACID) [Concomitant]
  4. ARAVA [Concomitant]
  5. METHOTREXATE [Concomitant]

REACTIONS (6)
  - ABDOMINAL PAIN [None]
  - DYSPNOEA [None]
  - FLUSHING [None]
  - GROIN PAIN [None]
  - HYPERTHERMIA [None]
  - VOMITING PROJECTILE [None]
